FAERS Safety Report 5618875-7 (Version None)
Quarter: 2008Q1

REPORT INFORMATION
  Report Type: 
  Country: None (occurrence: None)
  Receive Date: 20080207
  Receipt Date: 20080201
  Transmission Date: 20080703
  Serious: Yes (Other)
  Sender: FDA-Public Use
  Company Number: US-PFIZER INC-2007046175

PATIENT
  Sex: Female
  Weight: 92 kg

DRUGS (2)
  1. BEXTRA [Suspect]
     Indication: FIBROMYALGIA
  2. BEXTRA [Suspect]
     Indication: INFLAMMATORY PAIN

REACTIONS (1)
  - STEVENS-JOHNSON SYNDROME [None]
